FAERS Safety Report 8197793-7 (Version None)
Quarter: 2012Q1

REPORT INFORMATION
  Report Type: 
  Country: None (occurrence: None)
  Receive Date: 20120309
  Receipt Date: 20120301
  Transmission Date: 20120608
  Serious: Yes (Other)
  Sender: FDA-Public Use
  Company Number: DE-BRISTOL-MYERS SQUIBB COMPANY-16435380

PATIENT
  Age: 35 Year
  Sex: Female
  Weight: 72 kg

DRUGS (3)
  1. COLECALCIFEROL [Concomitant]
     Indication: VITAMIN D DEFICIENCY
     Route: 048
     Dates: start: 20100803, end: 20110111
  2. LEVOTHYROXINE SODIUM [Concomitant]
     Indication: HYPOTHYROIDISM
     Dosage: ALSO 100MG 1 PER DAY MAR11-3MAY11 2 MONTHS. 50MG 7MONTHS 3AUG10-MAR11
     Route: 048
     Dates: start: 20100803, end: 20110503
  3. METFORMIN HCL [Suspect]
     Indication: POLYCYSTIC OVARIES
     Route: 048
     Dates: start: 20100803, end: 20110111

REACTIONS (4)
  - LIVE BIRTH [None]
  - PREGNANCY [None]
  - OFF LABEL USE [None]
  - GESTATIONAL DIABETES [None]
